FAERS Safety Report 6031463-6 (Version None)
Quarter: 2009Q1

REPORT INFORMATION
  Report Type: 
  Country: None (occurrence: None)
  Receive Date: 20090108
  Receipt Date: 20090102
  Transmission Date: 20090719
  Serious: Yes (Life-Threatening, Hospitalization)
  Sender: FDA-Public Use
  Company Number: GB-PFIZER INC-2008084033

PATIENT

DRUGS (12)
  1. ATORVASTATIN CALCIUM [Suspect]
     Dosage: 40 MG, 1X/DAY
  2. FLUCLOXACILLIN [Suspect]
     Indication: OSTEOMYELITIS
     Dosage: 500 MG, 4X/DAY
  3. FUCIDINE CAP [Interacting]
     Indication: OSTEOMYELITIS
     Dosage: 500 MG, 3X/DAY
  4. AMLODIPINE [Concomitant]
  5. ASPIRIN [Concomitant]
  6. BISOPROLOL FUMARATE [Concomitant]
  7. CLOPIDOGREL [Concomitant]
  8. FUROSEMIDE [Concomitant]
  9. INSULIN [Concomitant]
  10. LANSOPRAZOLE [Concomitant]
  11. SPIRONOLACTONE [Concomitant]
  12. EPOGEN [Concomitant]

REACTIONS (2)
  - DRUG INTERACTION [None]
  - RHABDOMYOLYSIS [None]
